FAERS Safety Report 16741963 (Version 1)
Quarter: 2019Q3

REPORT INFORMATION
  Report Type: Spontaneous
  Country: CA (occurrence: CA)
  Receive Date: 20190826
  Receipt Date: 20190826
  Transmission Date: 20191005
  Serious: Yes (Other)
  Sender: FDA-Public Use
  Company Number: CA-TEVA-2019-CA-1098021

PATIENT
  Sex: Male

DRUGS (8)
  1. ERGOCALCIFEROL. [Concomitant]
     Active Substance: ERGOCALCIFEROL
     Route: 065
  2. FLAGYL [Concomitant]
     Active Substance: METRONIDAZOLE\METRONIDAZOLE HYDROCHLORIDE
     Indication: CLOSTRIDIUM DIFFICILE INFECTION
     Route: 048
  3. REMICADE [Suspect]
     Active Substance: INFLIXIMAB
     Indication: COLITIS ULCERATIVE
     Route: 042
  4. BICARBONATE [Concomitant]
     Active Substance: SODIUM BICARBONATE
     Indication: BONE PAIN
     Route: 065
  5. CALCIUM [Concomitant]
     Active Substance: CALCIUM
     Route: 065
  6. IRON [Concomitant]
     Active Substance: IRON
     Route: 065
  7. PREDNISONE. [Suspect]
     Active Substance: PREDNISONE
     Indication: PRODUCT USED FOR UNKNOWN INDICATION
     Route: 048
  8. SEPTRA [Concomitant]
     Active Substance: SULFAMETHOXAZOLE\TRIMETHOPRIM
     Route: 048

REACTIONS (9)
  - Tachyarrhythmia [Unknown]
  - Colitis ulcerative [Unknown]
  - Night sweats [Unknown]
  - Asthenia [Unknown]
  - Back pain [Unknown]
  - Muscular weakness [Unknown]
  - Paraesthesia [Unknown]
  - Drug ineffective [Unknown]
  - Emotional distress [Unknown]
